FAERS Safety Report 6570020-X (Version None)
Quarter: 2010Q1

REPORT INFORMATION
  Report Type: 
  Country: None (occurrence: None)
  Receive Date: 20100204
  Receipt Date: 20100104
  Transmission Date: 20100710
  Serious: No
  Sender: FDA-Public Use
  Company Number: US-BAYER-00/05454-USE

PATIENT
  Age: 20 Year
  Sex: Female

DRUGS (1)
  1. BETASERON [Suspect]
     Indication: MULTIPLE SCLEROSIS
     Dosage: AS USED: 8 MIU
     Route: 058
     Dates: start: 20000918, end: 20050101

REACTIONS (1)
  - INFLUENZA LIKE ILLNESS [None]
